FAERS Safety Report 9138027 (Version 5)
Quarter: 2013Q3

REPORT INFORMATION
  Report Type: Report from Study
  Country: PL (occurrence: PL)
  Receive Date: 20130304
  Receipt Date: 20130717
  Transmission Date: 20140515
  Serious: Yes (Death)
  Sender: FDA-Public Use
  Company Number: PL-CELGENEUS-129-CCAZA-13023914

PATIENT
  Age: 74 Year
  Sex: Female
  Weight: 51 kg

DRUGS (6)
  1. AZACITIDINE INJECTABLE [Suspect]
     Indication: ACUTE MYELOID LEUKAEMIA
     Route: 058
     Dates: start: 20111227
  2. AZACITIDINE INJECTABLE [Suspect]
     Dosage: 75 MILLIGRAM/SQ. METER
     Route: 058
     Dates: start: 20130102, end: 20130108
  3. RIVANOL [Concomitant]
     Indication: INFLAMMATION
     Dosage: 10 MILLILITER
     Route: 061
     Dates: start: 20120725
  4. CIPROFLOXACIN [Concomitant]
     Indication: INFECTION PROPHYLAXIS
     Dosage: 500 MILLIGRAM
     Route: 048
     Dates: start: 20120807
  5. ONDANSETRON [Concomitant]
     Indication: PROPHYLAXIS OF NAUSEA AND VOMITING
     Dosage: 10 MILLIGRAM
     Route: 048
     Dates: start: 201212
  6. ONDANSETRON [Concomitant]
     Dosage: 10 MILLIGRAM
     Route: 041
     Dates: start: 20130102, end: 20130106

REACTIONS (1)
  - Death [Fatal]
